FAERS Safety Report 8529336-X (Version None)
Quarter: 2012Q3

REPORT INFORMATION
  Report Type: 
  Country: None (occurrence: None)
  Receive Date: 20120723
  Receipt Date: 20120713
  Transmission Date: 20120928
  Serious: Yes (Hospitalization)
  Sender: FDA-Public Use
  Company Number: GB-009507513-1207GBR004938

PATIENT

DRUGS (14)
  1. LORAZEPAM [Suspect]
     Dosage: 1 MG, TID
  2. PROPRANOLOL HYDROCHLORIDE [Suspect]
     Dosage: 10 MG, Q4H
  3. ACRIVASTINE [Concomitant]
     Dosage: 8 MG, TID
  4. MIRTAZAPINE [Suspect]
     Dosage: 15 MG, QD
  5. PAROXETINE HYDROCHLORIDE [Suspect]
     Indication: DEPRESSION
     Dosage: 20 MG, BID
     Route: 048
     Dates: start: 20111101
  6. BECONASE [Concomitant]
  7. MIRTAZAPINE [Suspect]
     Dosage: 30 MG, UNK
  8. ATORVASTATIN CALCIUM [Concomitant]
     Dosage: 40 MG, QD
  9. METOCLOPRAMIDE [Suspect]
  10. FENOFIBRATE [Concomitant]
     Dosage: 160 MG, QD
  11. RAMIPRIL [Concomitant]
     Dosage: 2.5 MG, QD
  12. TETRABENAZINE [Suspect]
     Dosage: 4.5 MG, QD
  13. BENDROFLUAZIDE TABLETS [Concomitant]
     Dosage: 2.5 MG, QD
  14. OMEPRAZOLE [Concomitant]
     Dosage: 30 MG, QD

REACTIONS (5)
  - HALLUCINATION [None]
  - MUSCLE CONTRACTIONS INVOLUNTARY [None]
  - FALL [None]
  - EATING DISORDER [None]
  - AKATHISIA [None]
